FAERS Safety Report 7821360-5 (Version None)
Quarter: 2011Q4

REPORT INFORMATION
  Report Type: 
  Country: None (occurrence: None)
  Receive Date: 20111018
  Receipt Date: 20100922
  Transmission Date: 20120403
  Serious: Yes (Hospitalization)
  Sender: FDA-Public Use
  Company Number: US-ASTRAZENECA-2010SE44711

PATIENT
  Age: 70 Year
  Sex: Male

DRUGS (10)
  1. LEVOTHYROXINE SODIUM [Concomitant]
  2. SUCRALFATE [Concomitant]
  3. TRIAMPTERINE [Concomitant]
  4. PREDNISONE [Concomitant]
  5. SPIRIVA [Concomitant]
  6. CLONIDINE [Concomitant]
  7. PAXIL [Concomitant]
  8. PROVENTIL [Concomitant]
  9. SEROQUEL [Concomitant]
     Route: 048
  10. SYMBICORT [Suspect]
     Indication: CHRONIC OBSTRUCTIVE PULMONARY DISEASE
     Dosage: TOTAL DAILY DOSE 640 UG, 160/4.5 UG TWO PUFFS, BID
     Route: 055

REACTIONS (2)
  - STAPHYLOCOCCAL INFECTION [None]
  - DRUG DOSE OMISSION [None]
